FAERS Safety Report 16227649 (Version 1)
Quarter: 2019Q2

REPORT INFORMATION
  Report Type: Spontaneous
  Country: US (occurrence: US)
  Receive Date: 20190423
  Receipt Date: 20190423
  Transmission Date: 20190711
  Serious: No
  Sender: FDA-Public Use
  Company Number: US-PFIZER INC-2019159951

PATIENT
  Age: 2 Year
  Sex: Female

DRUGS (4)
  1. GENOTROPIN MQ [Suspect]
     Active Substance: SOMATROPIN
     Dosage: 0.6 MG, UNK (BY INJECTION THREE TIMES PER WEEK)
     Dates: start: 201902
  2. GENOTROPIN MQ [Suspect]
     Active Substance: SOMATROPIN
     Dosage: 0.6 MG, UNK (3 DAYS PER WEEK)
     Dates: start: 201805
  3. GENOTROPIN MQ [Suspect]
     Active Substance: SOMATROPIN
     Indication: GROWTH HORMONE DEFICIENCY
     Dosage: 0.6 MG, AS NEEDED( OFF AND ON SITUATION)
  4. GENOTROPIN MQ [Suspect]
     Active Substance: SOMATROPIN
     Indication: BLOOD GLUCOSE ABNORMAL
     Dosage: 0.6 MG, WEEKLY(0-1 SHOTS PER WEEK.)
     Dates: end: 201805

REACTIONS (3)
  - Product dose omission [Unknown]
  - Intentional product misuse [Unknown]
  - Drug ineffective [Unknown]
